FAERS Safety Report 12168159 (Version 3)
Quarter: 2016Q2

REPORT INFORMATION
  Report Type: Report from Study
  Country: US (occurrence: US)
  Receive Date: 20160310
  Receipt Date: 20160526
  Transmission Date: 20160815
  Serious: Yes (Hospitalization, Other)
  Sender: FDA-Public Use
  Company Number: US-JNJFOC-20160309619

PATIENT
  Age: 91 Year
  Sex: Male

DRUGS (7)
  1. IMBRUVICA [Suspect]
     Active Substance: IBRUTINIB
     Indication: LYMPHOCYTIC LEUKAEMIA
     Route: 048
     Dates: start: 20160225, end: 20160303
  2. SINGULAIR [Concomitant]
     Active Substance: MONTELUKAST SODIUM
  3. SIMVASTATIN. [Concomitant]
     Active Substance: SIMVASTATIN
  4. OMEPRAZOLE. [Concomitant]
     Active Substance: OMEPRAZOLE
  5. VITAMIN D [Concomitant]
     Active Substance: CHOLECALCIFEROL
  6. IMBRUVICA [Suspect]
     Active Substance: IBRUTINIB
     Indication: CHRONIC LYMPHOCYTIC LEUKAEMIA
     Route: 048
     Dates: start: 20160225, end: 20160303
  7. AMLODIPINE BESILATE W/BENAZEPRIL [Concomitant]

REACTIONS (14)
  - Mobility decreased [Recovered/Resolved]
  - Musculoskeletal pain [Not Recovered/Not Resolved]
  - Mental status changes [Recovered/Resolved]
  - Lethargy [Unknown]
  - Asthenia [Unknown]
  - Cardiac failure [Unknown]
  - Periarthritis [Recovering/Resolving]
  - Haemarthrosis [Recovering/Resolving]
  - Peripheral swelling [Unknown]
  - Oedema [Recovered/Resolved]
  - Haematoma [Recovered/Resolved]
  - Off label use [Unknown]
  - Contusion [Recovered/Resolved]
  - Nausea [Unknown]

NARRATIVE: CASE EVENT DATE: 2016
